FAERS Safety Report 10338335 (Version 1)
Quarter: 2014Q3

REPORT INFORMATION
  Report Type: Spontaneous
  Country: IN (occurrence: IN)
  Receive Date: 20140724
  Receipt Date: 20140724
  Transmission Date: 20150326
  Serious: Yes (Other)
  Sender: FDA-Public Use
  Company Number: IN-SUN PHARMACEUTICAL INDUSTRIES LTD-2014SUN01588

PATIENT

DRUGS (4)
  1. TEMOZOLOMIDE CAPSULES 5MG [Suspect]
     Active Substance: TEMOZOLOMIDE
     Indication: BRAIN NEOPLASM
     Dosage: 12-WEEKLY CYCLES
     Route: 048
     Dates: start: 2010
  2. 13-CISRETINOIC ACID [Suspect]
     Active Substance: ISOTRETINOIN
     Indication: BRAIN NEOPLASM
     Dosage: 12-WEEKLY CYCLES
     Route: 048
     Dates: start: 2010
  3. VALPROIC ACID. [Suspect]
     Active Substance: VALPROIC ACID
     Indication: BRAIN NEOPLASM
     Dosage: 12-WEEKLY CYCLES
     Route: 048
     Dates: start: 2010
  4. ETOPOSIDE. [Suspect]
     Active Substance: ETOPOSIDE
     Indication: BRAIN NEOPLASM
     Dosage: 12-WEEKLY CYCLES
     Route: 048
     Dates: start: 2010

REACTIONS (2)
  - Myelodysplastic syndrome [Unknown]
  - Skin toxicity [None]
